FAERS Safety Report 12679481 (Version 2)
Quarter: 2016Q3

REPORT INFORMATION
  Report Type: Spontaneous
  Country: GB (occurrence: GB)
  Receive Date: 20160824
  Receipt Date: 20160831
  Transmission Date: 20161109
  Serious: Yes (Disabling, Other)
  Sender: FDA-Public Use
  Company Number: GB-009507513-1608GBR009815

PATIENT
  Age: 29 Year
  Sex: Female

DRUGS (2)
  1. MIRTAZAPINE. [Suspect]
     Active Substance: MIRTAZAPINE
     Indication: DEPRESSION
     Route: 048
     Dates: start: 20160714, end: 20160727
  2. MIGRALEVE (ACETAMINOPHEN (+) BUCLIZINE HYDROCHLORIDE (+) CODEINE PHOSP [Concomitant]

REACTIONS (2)
  - Oral mucosal blistering [Recovering/Resolving]
  - Headache [Recovering/Resolving]

NARRATIVE: CASE EVENT DATE: 20160716
